FAERS Safety Report 9642884 (Version 1)
Quarter: 2013Q4

REPORT INFORMATION
  Report Type: Report from Study
  Country: DE (occurrence: DE)
  Receive Date: 20131024
  Receipt Date: 20131024
  Transmission Date: 20140711
  Serious: No
  Sender: FDA-Public Use
  Company Number: PHHY2013DE120000

PATIENT
  Sex: Female

DRUGS (8)
  1. AMN107 [Suspect]
     Indication: CHRONIC MYELOID LEUKAEMIA
     Dosage: 600 MG PER DAY
     Route: 048
     Dates: start: 20120907
  2. METOPROLOL SUCCINATE [Concomitant]
  3. ASS [Concomitant]
  4. CORIFEO [Concomitant]
     Dosage: 20 MG, UNK
  5. PANTOPRAZOL [Concomitant]
  6. NOVAMINSULFON [Concomitant]
     Dosage: 500 MG/80 DRPOS
  7. SIMVASTATIN [Concomitant]
     Dosage: 20 MG, UNK
  8. TORASEMID [Concomitant]
     Dosage: 7.5 MG, UNK

REACTIONS (1)
  - Muscle spasms [Not Recovered/Not Resolved]
